FAERS Safety Report 5572187-9 (Version None)
Quarter: 2007Q4

REPORT INFORMATION
  Report Type: 
  Country: None (occurrence: None)
  Receive Date: 20071221
  Receipt Date: 20071210
  Transmission Date: 20080405
  Serious: Yes (Death)
  Sender: FDA-Public Use
  Company Number: KR-PFIZER INC-2007103871

PATIENT
  Age: 31 Year
  Sex: Female

DRUGS (1)
  1. MISOPROSTOL [Suspect]
     Route: 048

REACTIONS (1)
  - DEATH [None]
